FAERS Safety Report 5043248-8 (Version None)
Quarter: 2006Q2

REPORT INFORMATION
  Report Type: 
  Country: None (occurrence: None)
  Receive Date: 20060627
  Receipt Date: 20060612
  Transmission Date: 20061013
  Serious: Yes (Hospitalization)
  Sender: FDA-Public Use
  Company Number: 2006S1000134

PATIENT
  Age: 75 Year
  Sex: Male
  Weight: 120.0218 kg

DRUGS (2)
  1. ACITRETIN [Suspect]
     Indication: PITYRIASIS RUBRA PILARIS
     Dosage: SEE IMAGE
     Route: 048
     Dates: start: 20060310, end: 20060301
  2. ACITRETIN [Suspect]
     Indication: PITYRIASIS RUBRA PILARIS
     Dosage: SEE IMAGE
     Route: 048
     Dates: start: 20060404

REACTIONS (12)
  - AORTIC STENOSIS [None]
  - ASTHENIA [None]
  - ATRIAL FIBRILLATION [None]
  - C-REACTIVE PROTEIN INCREASED [None]
  - CARDIAC MURMUR [None]
  - DIZZINESS [None]
  - ERYTHEMA [None]
  - HEART RATE IRREGULAR [None]
  - LETHARGY [None]
  - MALAISE [None]
  - PYREXIA [None]
  - URINARY INCONTINENCE [None]
